FAERS Safety Report 9655926 (Version 1)
Quarter: 2013Q4

REPORT INFORMATION
  Report Type: Spontaneous
  Country: US (occurrence: US)
  Receive Date: 20131030
  Receipt Date: 20131030
  Transmission Date: 20140711
  Serious: No
  Sender: FDA-Public Use
  Company Number: US-009507513-1310USA009736

PATIENT
  Sex: Female

DRUGS (5)
  1. VICTRELIS [Suspect]
     Indication: HEPATITIS C
     Route: 048
  2. PEGASYS [Suspect]
     Indication: HEPATITIS C
  3. COPEGUS [Suspect]
     Indication: HEPATITIS C
  4. MOTRIN [Concomitant]
  5. GABAPENTIN [Concomitant]
     Indication: MUSCLE SPASMS

REACTIONS (2)
  - Contusion [Not Recovered/Not Resolved]
  - Pyrexia [Unknown]
